FAERS Safety Report 14804484 (Version 2)
Quarter: 2018Q2

REPORT INFORMATION
  Report Type: Spontaneous
  Country: US (occurrence: US)
  Receive Date: 20180425
  Receipt Date: 20180510
  Transmission Date: 20180711
  Serious: Yes (Other)
  Sender: FDA-Public Use
  Company Number: US-ASCEND THERAPEUTICS-2046439

PATIENT
  Age: 61 Year
  Sex: Female

DRUGS (2)
  1. ADVIL [Concomitant]
     Active Substance: IBUPROFEN
     Route: 065
  2. ESTROGEL [Suspect]
     Active Substance: ESTRADIOL
     Indication: NIGHT SWEATS
     Route: 065
     Dates: start: 20170516, end: 20180215

REACTIONS (7)
  - Confusional state [Unknown]
  - Pain [Unknown]
  - Fall [Unknown]
  - Hypoaesthesia [Unknown]
  - Migraine [Not Recovered/Not Resolved]
  - Dizziness [Unknown]
  - Visual impairment [Recovering/Resolving]

NARRATIVE: CASE EVENT DATE: 201710
